FAERS Safety Report 5201678-5 (Version None)
Quarter: 2006Q4

REPORT INFORMATION
  Report Type: 
  Country: None (occurrence: None)
  Receive Date: 20061010
  Receipt Date: 20060802
  Transmission Date: 20070319
  Serious: Yes (Death)
  Sender: FDA-Public Use
  Company Number: 06P-163-0339410-00

PATIENT
  Age: 65 Year
  Sex: Male
  Weight: 95 kg

DRUGS (14)
  1. TRICOR [Suspect]
     Indication: DYSLIPIDAEMIA
     Dosage: 160 MG, 1 IN 1 D, PER ORAL
     Route: 048
     Dates: end: 20060711
  2. PIOGLITAZONE HCL [Suspect]
     Indication: DIABETES MELLITUS
     Dosage: 45 MG, 1 IN 1 D, PER ORAL
     Route: 048
     Dates: end: 20060711
  3. NICOTINIC ACID [Suspect]
     Indication: BLOOD CHOLESTEROL INCREASED
     Dosage: 500 MG, 1 IN 1 D, PER ORAL
     Route: 048
     Dates: start: 20060711, end: 20060711
  4. NICOTINIC ACID [Suspect]
     Indication: HIGH DENSITY LIPOPROTEIN DECREASED
     Dosage: 500 MG, 1 IN 1 D, PER ORAL
     Route: 048
     Dates: start: 20060711, end: 20060711
  5. BUPROPION HYDROCHLORIDE [Suspect]
     Indication: DEPRESSION
     Dosage: 300 MG, 1 IN 1 D, PER ORAL
     Route: 048
     Dates: end: 20060711
  6. VENLAFAXINE HCL [Suspect]
     Indication: DEPRESSION
     Dosage: 150 MG, 1 IN 1 D, PER ORAL
     Route: 048
     Dates: end: 20060711
  7. LORAZEPAM [Suspect]
     Indication: DEPRESSION
     Dosage: 2 MG, 1 IN 1 D, PER ORAL
     Route: 048
     Dates: end: 20060711
  8. TRAZODONE HCL [Suspect]
     Indication: DEPRESSION
     Dosage: 200 MG, 1 IN 1 D, PER ORAL
     Route: 048
     Dates: end: 20060711
  9. ATENOLOL [Suspect]
     Indication: TACHYARRHYTHMIA
     Dosage: 100 MG, 1 IN 1 D, PER ORAL
     Route: 048
     Dates: end: 20060711
  10. DIGOXIN [Suspect]
     Indication: TACHYARRHYTHMIA
     Dosage: 0.375 MG, 1 IN 1 D, PER ORAL
     Route: 048
     Dates: end: 20060711
  11. GLUCOPHAGE [Suspect]
     Indication: DIABETES MELLITUS
     Dosage: 1000 MG, 1 IN 1 D, PER ORAL
     Route: 048
     Dates: end: 20060711
  12. GLIPIZIDE [Suspect]
     Indication: DIABETES MELLITUS
     Dosage: 10 MILLICURIES, 1 IN 1 D, PER ORAL
     Route: 048
     Dates: end: 20060711
  13. INSULIN GLARGINE (INSULIN GLARGINE) [Suspect]
     Indication: DIABETES MELLITUS
     Dosage: 70 MG, 1 IN 1 D, PER ORAL
     Route: 048
     Dates: end: 20060711
  14. ATORVASTATIN CALCIUM [Suspect]

REACTIONS (4)
  - DRUG INTERACTION [None]
  - FLUSHING [None]
  - MEDICATION ERROR [None]
  - MYOCARDIAL INFARCTION [None]
